FAERS Safety Report 19513037 (Version 1)
Quarter: 2021Q3

REPORT INFORMATION
  Report Type: Report from Study
  Country: US (occurrence: US)
  Receive Date: 20210709
  Receipt Date: 20210709
  Transmission Date: 20211014
  Serious: No
  Sender: FDA-Public Use
  Company Number: US-SUNOVION-2021SUN002554

PATIENT
  Sex: Male

DRUGS (2)
  1. KYNMOBI [Suspect]
     Active Substance: APOMORPHINE HYDROCHLORIDE
     Dosage: 10 MG (CUTTING THE 10MG FILM INTO THREE PIECES)
     Route: 060
     Dates: start: 20210630
  2. KYNMOBI [Suspect]
     Active Substance: APOMORPHINE HYDROCHLORIDE
     Dosage: 15 MG
     Route: 060
     Dates: start: 20210707

REACTIONS (7)
  - Hyperhidrosis [Unknown]
  - Wrong technique in product usage process [Unknown]
  - Asthenia [Unknown]
  - Dizziness [Unknown]
  - Orthostatic hypotension [Unknown]
  - Nausea [Unknown]
  - Heart rate decreased [Unknown]

NARRATIVE: CASE EVENT DATE: 20210630
